FAERS Safety Report 11631989 (Version 1)
Quarter: 2015Q4

REPORT INFORMATION
  Report Type: Spontaneous
  Country: US (occurrence: None)
  Receive Date: 20151014
  Receipt Date: 20151014
  Transmission Date: 20160304
  Serious: No
  Sender: FDA-Public Use
  Company Number: None

PATIENT
  Age: 78 Year
  Sex: Female
  Weight: 63.5 kg

DRUGS (6)
  1. BENADRYL-ADVIL [Concomitant]
  2. LOSARTAN. [Concomitant]
     Active Substance: LOSARTAN
  3. VITAMIN D [Concomitant]
     Active Substance: CHOLECALCIFEROL
  4. VALSARTAN 80MG [Suspect]
     Active Substance: VALSARTAN
  5. VICODIN [Concomitant]
     Active Substance: ACETAMINOPHEN\HYDROCODONE BITARTRATE
  6. LOSORTAN POTASSIUM [Suspect]
     Active Substance: LOSARTAN POTASSIUM
     Indication: HYPERTENSION
     Dosage: 1 PILL
     Route: 048

REACTIONS (9)
  - Vision blurred [None]
  - Back pain [None]
  - Rhinorrhoea [None]
  - Cough [None]
  - Abdominal pain upper [None]
  - Headache [None]
  - Pollakiuria [None]
  - Pain [None]
  - Muscular weakness [None]

NARRATIVE: CASE EVENT DATE: 201501
